FAERS Safety Report 17755851 (Version 4)
Quarter: 2021Q1

REPORT INFORMATION
  Report Type: Spontaneous
  Country: GB (occurrence: GB)
  Receive Date: 20200507
  Receipt Date: 20210318
  Transmission Date: 20210419
  Serious: Yes (Other)
  Sender: FDA-Public Use
  Company Number: GB-ACCORD-180849

PATIENT
  Age: 86 Year
  Sex: Male

DRUGS (7)
  1. AMIODARONE [Concomitant]
     Active Substance: AMIODARONE
     Dosage: 600 MILLIGRAM, QD
     Dates: start: 20191211, end: 20191215
  2. OXYGEN. [Concomitant]
     Active Substance: OXYGEN
     Dates: start: 20191209, end: 20191215
  3. FUROSEMIDE. [Suspect]
     Active Substance: FUROSEMIDE
     Indication: PRODUCT USED FOR UNKNOWN INDICATION
     Dosage: 160 MG, QD
     Route: 042
     Dates: start: 20191211, end: 20191212
  4. NYSTATIN/NYSTATIN/LIPOSOME [Concomitant]
     Active Substance: NYSTATIN
     Dosage: 4 MILLILITER, QD (IN THE MORNING)
     Dates: start: 20191208, end: 20191215
  5. ZOPICLONE [Concomitant]
     Active Substance: ZOPICLONE
     Dosage: 3.75 MILLIGRAM, PRN (AT NIGHT)
     Dates: start: 20191210, end: 20191215
  6. APIXABAN [Concomitant]
     Active Substance: APIXABAN
     Dosage: 2.5 MILLIGRAM, QD(IN THE MORNING)
     Dates: start: 20191209, end: 20191215
  7. BUMETANIDE. [Suspect]
     Active Substance: BUMETANIDE
     Indication: PRODUCT USED FOR UNKNOWN INDICATION
     Dosage: 2MG GIVEN AT 8AM 10/12/2019, 1MG AT 1PM 11/12, 2MG AT 8AM 12/12
     Route: 048
     Dates: start: 20191209, end: 20191212

REACTIONS (2)
  - Acute kidney injury [Unknown]
  - Product prescribing error [Unknown]

NARRATIVE: CASE EVENT DATE: 20191212
